FAERS Safety Report 9223592 (Version 2)
Quarter: 2013Q2

REPORT INFORMATION
  Report Type: Spontaneous
  Country: US (occurrence: US)
  Receive Date: 20130410
  Receipt Date: 20130509
  Transmission Date: 20140414
  Serious: Yes (Hospitalization, Other)
  Sender: FDA-Public Use
  Company Number: US-GLAXOSMITHKLINE-A1019515A

PATIENT
  Age: 61 Year
  Sex: Female
  Weight: 75 kg

DRUGS (5)
  1. COREG [Suspect]
     Indication: PRODUCT USED FOR UNKNOWN INDICATION
     Dosage: 12.5MG UNKNOWN
     Dates: start: 20081201, end: 20130123
  2. HYZAAR [Concomitant]
     Indication: HYPERTENSION
     Dates: start: 20101025, end: 20130125
  3. NORVASC [Concomitant]
     Indication: HYPERTENSION
     Dates: start: 20100218, end: 20130125
  4. PRAVACHOL [Concomitant]
     Indication: LIPIDS INCREASED
     Dates: start: 20041014
  5. VITAMIN D3 [Concomitant]
     Indication: VITAMIN D DEFICIENCY
     Dates: start: 20110516

REACTIONS (2)
  - Hypertension [Recovering/Resolving]
  - Sinus headache [Recovering/Resolving]
